FAERS Safety Report 17338966 (Version 1)
Quarter: 2020Q1

REPORT INFORMATION
  Report Type: Spontaneous
  Country: US (occurrence: US)
  Receive Date: 20200113
  Receipt Date: 20200113
  Transmission Date: 20200409
  Serious: No
  Sender: FDA-Public Use
  Company Number: None

PATIENT

DRUGS (1)
  1. PAMELOR [Suspect]
     Active Substance: NORTRIPTYLINE HYDROCHLORIDE
     Route: 048

REACTIONS (12)
  - Wrong technique in product usage process [None]
  - Eructation [None]
  - Dysphonia [None]
  - Sensation of foreign body [None]
  - Oesophagitis [None]
  - Chest pain [None]
  - Dysphagia [None]
  - Dyspepsia [None]
  - Gastritis [None]
  - Scar [None]
  - Hiatus hernia [None]
  - Ulcer [None]
